FAERS Safety Report 7755465-4 (Version None)
Quarter: 2011Q3

REPORT INFORMATION
  Report Type: 
  Country: None (occurrence: None)
  Receive Date: 20110916
  Receipt Date: 20110909
  Transmission Date: 20111222
  Serious: Yes (Other)
  Sender: FDA-Public Use
  Company Number: CH-PFIZER INC-2011202847

PATIENT
  Age: 25 Year
  Sex: Female
  Weight: 44 kg

DRUGS (7)
  1. SULFASALAZINE [Suspect]
     Indication: RHEUMATOID ARTHRITIS
  2. AZATHIOPRINE [Suspect]
     Indication: CROHN'S DISEASE
     Dosage: 100 MG, 1X/DAY
     Route: 050
  3. AZATHIOPRINE [Suspect]
     Indication: RHEUMATOID ARTHRITIS
  4. VITAMINS NOS [Concomitant]
     Dosage: 1 DF, 2X/DAY
     Route: 050
  5. CO-BECETAMOL [Concomitant]
     Dosage: UNK
     Route: 050
  6. SULFASALAZINE [Suspect]
     Indication: CROHN'S DISEASE
     Dosage: 500 MG TWO TO FOUR TIMES DAILY
     Route: 050
  7. IMPLANON [Suspect]
     Indication: CONTRACEPTION
     Dosage: 1 DF, UNK
     Route: 050
     Dates: start: 20101227

REACTIONS (3)
  - UNINTENDED PREGNANCY [None]
  - ABORTION SPONTANEOUS [None]
  - DRUG PRESCRIBING ERROR [None]
